FAERS Safety Report 6089456-9 (Version None)
Quarter: 2009Q1

REPORT INFORMATION
  Report Type: 
  Country: None (occurrence: None)
  Receive Date: 20090220
  Receipt Date: 20090220
  Transmission Date: 20090719
  Serious: Yes (Other)
  Sender: FDA-Public Use
  Company Number: None

PATIENT
  Age: 36 Year
  Sex: Female
  Weight: 79.8331 kg

DRUGS (1)
  1. MARPLAN [Suspect]
     Indication: MAJOR DEPRESSION
     Dosage: 10MG 2 TIMES PER DAY PO
     Route: 048
     Dates: start: 20090101

REACTIONS (5)
  - DRUG INEFFECTIVE [None]
  - HYPOAESTHESIA [None]
  - INSOMNIA [None]
  - MIDDLE INSOMNIA [None]
  - PERIPHERAL COLDNESS [None]
